FAERS Safety Report 8948315 (Version 2)
Quarter: 2013Q2

REPORT INFORMATION
  Report Type: Report from Study
  Country: MX (occurrence: MX)
  Receive Date: 20121206
  Receipt Date: 20130624
  Transmission Date: 20140414
  Serious: Yes (Other)
  Sender: FDA-Public Use
  Company Number: PHHY2012MX111998

PATIENT
  Age: 78 Year
  Sex: Female

DRUGS (5)
  1. DIOVAN [Suspect]
     Indication: HYPERTENSION
     Dosage: 1 DF (160 MG), DAILY
     Route: 048
     Dates: start: 20091017
  2. EXFORGE HCT [Suspect]
     Indication: BLOOD PRESSURE
     Dosage: 1 DF,VALSARTAN, AMLODIPINE 5MG AND HYDROCHLOROTHIAZIDE
     Route: 048
     Dates: start: 199410
  3. COPLAVIX [Concomitant]
     Indication: COAGULATION TIME SHORTENED
     Dosage: 1 DF, UNK
     Dates: start: 201109
  4. CLOPIDOGREL [Concomitant]
     Indication: COAGULATION TIME SHORTENED
     Dosage: UNK UKN, UNK
     Dates: start: 201109
  5. ACETYLSALICYLIC ACID [Concomitant]
     Indication: COAGULATION TIME SHORTENED
     Dosage: UNK UKN, UNK
     Dates: start: 201109

REACTIONS (2)
  - Embolism [Recovered/Resolved]
  - Cataract [Not Recovered/Not Resolved]
